FAERS Safety Report 20621981 (Version 1)
Quarter: 2022Q1

REPORT INFORMATION
  Report Type: Spontaneous
  Country: US (occurrence: None)
  Receive Date: 20220321
  Receipt Date: 20220321
  Transmission Date: 20220424
  Serious: No
  Sender: FDA-Public Use
  Company Number: None

PATIENT
  Age: 65 Year
  Sex: Female
  Weight: 85.5 kg

DRUGS (10)
  1. ZOLPIDEM TARTRATE EXTENDED-RELEASE [Suspect]
     Active Substance: ZOLPIDEM TARTRATE
     Indication: Insomnia
     Dosage: FREQUENCY : AT BEDTIME;?
     Route: 048
     Dates: start: 20190112, end: 20220312
  2. VITAMIN D2 [Concomitant]
     Active Substance: ERGOCALCIFEROL
  3. MELOXICAM [Concomitant]
     Active Substance: MELOXICAM
  4. AMITRIPTYLINE [Concomitant]
     Active Substance: AMITRIPTYLINE
  5. NP THYROID [Concomitant]
     Active Substance: LEVOTHYROXINE\LIOTHYRONINE
  6. ZOLPIDEM TARTRATE [Concomitant]
     Active Substance: ZOLPIDEM TARTRATE
  7. Daily Multi Vitamin [Concomitant]
  8. CALCIUM CITRATE [Concomitant]
     Active Substance: CALCIUM CITRATE
  9. MAGNESIUM [Concomitant]
     Active Substance: MAGNESIUM
  10. ZINC [Concomitant]
     Active Substance: ZINC

REACTIONS (19)
  - Product substitution issue [None]
  - Alopecia [None]
  - Therapeutic product effect decreased [None]
  - Insomnia [None]
  - Poor quality sleep [None]
  - Fatigue [None]
  - Abdominal pain [None]
  - Back pain [None]
  - Abdominal distension [None]
  - Balance disorder [None]
  - Chills [None]
  - Cough [None]
  - Dyspnoea [None]
  - Myalgia [None]
  - Muscle spasms [None]
  - Impaired work ability [None]
  - Discomfort [None]
  - Family stress [None]
  - Decreased activity [None]

NARRATIVE: CASE EVENT DATE: 20190112
